FAERS Safety Report 24788969 (Version 1)
Quarter: 2024Q4

REPORT INFORMATION
  Report Type: Spontaneous
  Country: CN (occurrence: CN)
  Receive Date: 20241230
  Receipt Date: 20241230
  Transmission Date: 20250115
  Serious: Yes (Hospitalization, Other)
  Sender: GENEYORK PHARMACEUTICALS GROUP LLC
  Company Number: CN-GENEYORK-2024PPLIT00076

PATIENT
  Age: 68 Year
  Sex: Male

DRUGS (5)
  1. PREDNISONE [Suspect]
     Active Substance: PREDNISONE
     Indication: Diffuse large B-cell lymphoma
     Dosage: DOSE REDUCTION AFTER EVENT
     Route: 065
     Dates: start: 20230130, end: 20230708
  2. CYCLOPHOSPHAMIDE [Suspect]
     Active Substance: CYCLOPHOSPHAMIDE
     Indication: Diffuse large B-cell lymphoma
     Dosage: DOSE REDUCTION AFTER EVENT
     Route: 065
     Dates: start: 20230130, end: 20230708
  3. RITUXIMAB [Suspect]
     Active Substance: RITUXIMAB
     Indication: Diffuse large B-cell lymphoma
     Dosage: DOSE REDUCTION AFTER EVENT
     Route: 065
     Dates: start: 20230130, end: 20230708
  4. DOXORUBICIN [Suspect]
     Active Substance: DOXORUBICIN
     Indication: Diffuse large B-cell lymphoma
     Dosage: DOSE REDUCTION AFTER EVENT
     Route: 065
     Dates: start: 20230130, end: 20230708
  5. VINCRISTINE [Suspect]
     Active Substance: VINCRISTINE
     Indication: Diffuse large B-cell lymphoma
     Dosage: DOSE REDUCTION AFTER EVENT
     Route: 065
     Dates: start: 20230130, end: 20230708

REACTIONS (2)
  - Leukopenia [Recovered/Resolved]
  - Granulocyte count decreased [Recovered/Resolved]
